FAERS Safety Report 15540396 (Version 2)
Quarter: 2018Q4

REPORT INFORMATION
  Report Type: Spontaneous
  Country: IN (occurrence: IN)
  Receive Date: 20181023
  Receipt Date: 20181205
  Transmission Date: 20190205
  Serious: Yes (Other)
  Sender: FDA-Public Use
  Company Number: IN-CIPLA LTD.-2018IN21810

PATIENT

DRUGS (1)
  1. FLUTAMIDE. [Suspect]
     Active Substance: FLUTAMIDE
     Indication: JUVENILE ANGIOFIBROMA
     Dosage: 10 MG/KG, PER DAY
     Route: 065

REACTIONS (2)
  - Cerebrospinal fluid leakage [Unknown]
  - Meningitis [Unknown]
